FAERS Safety Report 7939545-6 (Version None)
Quarter: 2011Q4

REPORT INFORMATION
  Report Type: 
  Country: None (occurrence: None)
  Receive Date: 20111125
  Receipt Date: 20110909
  Transmission Date: 20120403
  Serious: No
  Sender: FDA-Public Use
  Company Number: US-BAYER-2011-089628

PATIENT
  Age: 87 Year
  Sex: Female
  Weight: 54 kg

DRUGS (4)
  1. UNKNOWN [Concomitant]
  2. UNKNOWN [Concomitant]
  3. ALEVE (CAPLET) [Suspect]
     Indication: BACK PAIN
     Dosage: UNK
     Route: 048
     Dates: start: 20100901
  4. PLAVIX [Concomitant]

REACTIONS (1)
  - BACK PAIN [None]
